FAERS Safety Report 9994081 (Version 1)
Quarter: 2014Q1

REPORT INFORMATION
  Report Type: Spontaneous
  Country: FR (occurrence: FR)
  Receive Date: 20140310
  Receipt Date: 20140310
  Transmission Date: 20141002
  Serious: Yes (Hospitalization)
  Sender: FDA-Public Use
  Company Number: FR-US-EMD SERONO, INC.-7273076

PATIENT
  Age: 29 Year
  Sex: Female

DRUGS (3)
  1. GONAL-F [Suspect]
     Indication: IN VITRO FERTILISATION
     Route: 058
     Dates: start: 20130815, end: 20130824
  2. OVITRELLE [Suspect]
     Indication: IN VITRO FERTILISATION
     Dates: start: 20130825, end: 20130825
  3. ORGALUTRAN /01453701/ [Suspect]
     Indication: IN VITRO FERTILISATION
     Dates: start: 20130821, end: 20130824

REACTIONS (2)
  - Effusion [Recovered/Resolved]
  - Abdominal pain [Recovered/Resolved]
